FAERS Safety Report 14184471 (Version 10)
Quarter: 2018Q3

REPORT INFORMATION
  Report Type: Spontaneous
  Country: PT (occurrence: PT)
  Receive Date: 20171113
  Receipt Date: 20180920
  Transmission Date: 20181010
  Serious: Yes (Other)
  Sender: FDA-Public Use
  Company Number: PHHY2017PT166150

PATIENT
  Sex: Female
  Weight: 2.4 kg

DRUGS (16)
  1. PREDNISOLONE. [Suspect]
     Active Substance: PREDNISOLONE
     Dosage: MOTHER DOSE 120 MG, QD
     Route: 064
  2. ENOXAPARIN [Suspect]
     Active Substance: ENOXAPARIN
     Indication: THROMBOSIS PROPHYLAXIS
     Dosage: 120 MG, QD (1 MG/KG/DAY)
     Route: 064
  3. NIFEDIPINE. [Suspect]
     Active Substance: NIFEDIPINE
     Indication: FOETAL EXPOSURE DURING PREGNANCY
     Dosage: UNK
     Route: 064
  4. ELTROMBOPAG [Suspect]
     Active Substance: ELTROMBOPAG
     Indication: THROMBOCYTOPENIC PURPURA
     Dosage: MOTHER DOSE 25 MG, QD
     Route: 064
     Dates: start: 20170731, end: 2017
  5. PREDNISOLONE. [Suspect]
     Active Substance: PREDNISOLONE
     Dosage: MOTHER DOSE 40 MG, QD
     Route: 064
  6. ELTROMBOPAG [Suspect]
     Active Substance: ELTROMBOPAG
     Dosage: MOTHER DOSE 12.5 MG, QD
     Route: 064
     Dates: start: 20170804, end: 20170814
  7. AZATHIOPRIN [Suspect]
     Active Substance: AZATHIOPRINE
     Indication: THROMBOCYTOPENIC PURPURA
  8. NIFEDIPINE. [Suspect]
     Active Substance: NIFEDIPINE
     Indication: HYPERTENSION
  9. PANTOPRAZOLE [Suspect]
     Active Substance: PANTOPRAZOLE
     Indication: FOETAL EXPOSURE DURING PREGNANCY
     Dosage: MOTHER DOSE 20 MG, QD
     Route: 064
  10. PREDNISOLONE. [Suspect]
     Active Substance: PREDNISOLONE
     Dosage: MOTHER DOSE 160 MG, QD
     Route: 064
  11. AZATHIOPRIN [Suspect]
     Active Substance: AZATHIOPRINE
     Indication: FOETAL EXPOSURE DURING PREGNANCY
     Dosage: MOTHER DOSE 150 MG, QD
     Route: 064
     Dates: start: 20170712, end: 20170731
  12. ENOXAPARIN [Suspect]
     Active Substance: ENOXAPARIN
     Indication: FOETAL EXPOSURE DURING PREGNANCY
  13. ELTROMBOPAG [Suspect]
     Active Substance: ELTROMBOPAG
     Indication: FOETAL EXPOSURE DURING PREGNANCY
     Dosage: MOTHER DOSE 50 MG, QD
     Route: 064
     Dates: start: 20170718, end: 201707
  14. PREDNISOLONE. [Suspect]
     Active Substance: PREDNISOLONE
     Indication: FOETAL EXPOSURE DURING PREGNANCY
     Dosage: MOTHER DOSE 80 MG, QD
     Route: 064
  15. DEXAMETHASONE. [Suspect]
     Active Substance: DEXAMETHASONE
     Indication: FOETAL EXPOSURE DURING PREGNANCY
     Dosage: MOTHER DOSE 6 MG, QID
     Route: 064
  16. METHYLPREDNISOLONE. [Suspect]
     Active Substance: METHYLPREDNISOLONE
     Indication: FOETAL EXPOSURE DURING PREGNANCY
     Dosage: 90 MG, QD (MOTHER DOSE)
     Route: 064

REACTIONS (4)
  - Foetal exposure during delivery [Unknown]
  - Jaundice neonatal [Unknown]
  - Maternal exposure during pregnancy [Unknown]
  - Premature baby [Unknown]
